FAERS Safety Report 15698872 (Version 1)
Quarter: 2018Q4

REPORT INFORMATION
  Report Type: Spontaneous
  Country: ES (occurrence: ES)
  Receive Date: 20181207
  Receipt Date: 20181207
  Transmission Date: 20190205
  Serious: Yes (Other)
  Sender: FDA-Public Use
  Company Number: ES-MYLANLABS-2018M1088444

PATIENT
  Age: 38 Year
  Sex: Female

DRUGS (1)
  1. DOXYCYCLINE. [Suspect]
     Active Substance: DOXYCYCLINE
     Indication: PRESCRIPTION DRUG USED WITHOUT A PRESCRIPTION
     Route: 048

REACTIONS (2)
  - Wrong technique in product usage process [Unknown]
  - Oesophageal ulcer [Unknown]
